FAERS Safety Report 4390714-4 (Version None)
Quarter: 2004Q3

REPORT INFORMATION
  Report Type: 
  Country: None (occurrence: None)
  Receive Date: 20040701
  Receipt Date: 20040629
  Transmission Date: 20050211
  Serious: Yes (Other)
  Sender: FDA-Public Use
  Company Number: FLUV00304002035

PATIENT
  Sex: Female

DRUGS (1)
  1. LUVOX [Suspect]
     Indication: ILL-DEFINED DISORDER
     Dosage: 50 MG ONCE PO
     Route: 048
     Dates: start: 20040601, end: 20040601

REACTIONS (2)
  - ACCIDENTAL EXPOSURE [None]
  - MYDRIASIS [None]
